FAERS Safety Report 14326718 (Version 1)
Quarter: 2017Q4

REPORT INFORMATION
  Report Type: Spontaneous
  Country: US (occurrence: US)
  Receive Date: 20171226
  Receipt Date: 20171226
  Transmission Date: 20180321
  Serious: No
  Sender: FDA-Public Use
  Company Number: None

PATIENT
  Sex: Female
  Weight: 76.5 kg

DRUGS (19)
  1. ATENOLOL. [Concomitant]
     Active Substance: ATENOLOL
  2. VENLAFAXINE XR [Concomitant]
     Active Substance: VENLAFAXINE HYDROCHLORIDE
  3. TESTOSTERONE. [Concomitant]
     Active Substance: TESTOSTERONE
  4. N-ACETYL CYSTEINE [Concomitant]
  5. MAGNESIUM CHLORIDE BRINE [Concomitant]
  6. ESTRADIOL. [Concomitant]
     Active Substance: ESTRADIOL
  7. COQ10 [Concomitant]
     Active Substance: UBIDECARENONE
  8. ACYCLOVIR. [Suspect]
     Active Substance: ACYCLOVIR
     Indication: HERPES ZOSTER
     Dosage: ?          QUANTITY:1 TABLET(S);?
     Route: 048
     Dates: start: 20171104, end: 20171212
  9. DHEA [Concomitant]
     Active Substance: PRASTERONE
  10. CALM (MAGNESIUM POWDER) [Concomitant]
  11. JUICE PLUS WHOLE FOOD CAPSULES [Concomitant]
  12. ALIGN [Concomitant]
     Active Substance: BIFIDOBACTERIUM LONGUM SUBSP. INFANTIS
  13. PROGESTERONE. [Concomitant]
     Active Substance: PROGESTERONE
  14. OMEGAMOOD 3 [Concomitant]
  15. CENTRUM SILVER FOR WOMEN [Concomitant]
     Active Substance: MINERALS\VITAMINS
  16. PREGNENOLONE [Concomitant]
     Active Substance: PREGNENOLONE
  17. ESTRIOL [Concomitant]
     Active Substance: ESTRIOL
  18. VITAMIN D [Concomitant]
     Active Substance: CHOLECALCIFEROL
  19. BUPROPION HYDROCHLORIDE XL [Concomitant]
     Active Substance: BUPROPION HYDROCHLORIDE

REACTIONS (1)
  - Vaginal haemorrhage [None]

NARRATIVE: CASE EVENT DATE: 20171107
